FAERS Safety Report 18586178 (Version 1)
Quarter: 2020Q4

REPORT INFORMATION
  Report Type: Report from Study
  Country: US (occurrence: US)
  Receive Date: 20201207
  Receipt Date: 20201207
  Transmission Date: 20210114
  Serious: Yes (Hospitalization)
  Sender: FDA-Public Use
  Company Number: US-GILEAD-2020-0507318

PATIENT
  Age: 66 Year
  Sex: Female

DRUGS (10)
  1. OXYCODONE [Concomitant]
     Active Substance: OXYCODONE
  2. SUCRALFATE. [Concomitant]
     Active Substance: SUCRALFATE
  3. TIZANIDINE. [Concomitant]
     Active Substance: TIZANIDINE
  4. AMBRISENTAN [Suspect]
     Active Substance: AMBRISENTAN
     Indication: PULMONARY ARTERIAL HYPERTENSION
     Dosage: 10 MG, QD
     Route: 065
     Dates: start: 20181206
  5. FOLIC ACID. [Concomitant]
     Active Substance: FOLIC ACID
  6. LORAZEPAM. [Concomitant]
     Active Substance: LORAZEPAM
  7. TRAMADOL. [Concomitant]
     Active Substance: TRAMADOL
  8. ATORVASTATIN [Concomitant]
     Active Substance: ATORVASTATIN
  9. DOXYCYCLINE. [Concomitant]
     Active Substance: DOXYCYCLINE
  10. VIT D [Concomitant]
     Active Substance: VITAMIN D NOS

REACTIONS (2)
  - Haemorrhage [Unknown]
  - Intentional dose omission [Unknown]
